FAERS Safety Report 24064955 (Version 2)
Quarter: 2024Q3

REPORT INFORMATION
  Report Type: Spontaneous
  Country: JP (occurrence: JP)
  Receive Date: 20240709
  Receipt Date: 20240806
  Transmission Date: 20241016
  Serious: Yes (Hospitalization, Other)
  Sender: BRISTOL MYERS SQUIBB
  Company Number: JP-BRISTOL-MYERS SQUIBB COMPANY-2024-107701

PATIENT
  Age: 76 Year
  Sex: Female

DRUGS (7)
  1. SOTYKTU [Suspect]
     Active Substance: DEUCRAVACITINIB
     Indication: Psoriasis
  2. TENELIGLIPTIN HYDROBROMIDE HYDRATE [Suspect]
     Active Substance: TENELIGLIPTIN HYDROBROMIDE HYDRATE
     Indication: Product used for unknown indication
     Dates: start: 20240209
  3. TENELIGLIPTIN HYDROBROMIDE HYDRATE [Suspect]
     Active Substance: TENELIGLIPTIN HYDROBROMIDE HYDRATE
     Dates: start: 20240308, end: 20240701
  4. MIGLITOL [Suspect]
     Active Substance: MIGLITOL
     Indication: Product used for unknown indication
     Dosage: BEFORE EVERY MEAL
     Dates: start: 20240614
  5. PREDONINE [Suspect]
     Active Substance: PREDNISOLONE
     Indication: Psoriasis
     Route: 048
  6. DESLORATADINE [Concomitant]
     Active Substance: DESLORATADINE
     Indication: Psoriasis
  7. ALLELOCK [Concomitant]
     Active Substance: OLOPATADINE HYDROCHLORIDE
     Indication: Psoriasis

REACTIONS (2)
  - Steroid diabetes [Unknown]
  - Drug eruption [Unknown]
